FAERS Safety Report 7146310-9 (Version None)
Quarter: 2010Q4

REPORT INFORMATION
  Report Type: 
  Country: None (occurrence: None)
  Receive Date: 20101208
  Receipt Date: 20101129
  Transmission Date: 20110411
  Serious: Yes (Hospitalization)
  Sender: FDA-Public Use
  Company Number: CA-JNJFOC-20101200580

PATIENT
  Sex: Female
  Weight: 71.8 kg

DRUGS (7)
  1. REMICADE [Suspect]
     Indication: RHEUMATOID ARTHRITIS
     Route: 042
  2. REMICADE [Suspect]
     Route: 042
  3. ARAVA [Concomitant]
  4. DIDROCAL [Concomitant]
  5. INHIBACE [Concomitant]
  6. FOLIC ACID [Concomitant]
  7. ASAPHEN [Concomitant]

REACTIONS (2)
  - BLOOD POTASSIUM DECREASED [None]
  - DIARRHOEA [None]
